FAERS Safety Report 25999223 (Version 1)
Quarter: 2025Q4

REPORT INFORMATION
  Report Type: Spontaneous
  Country: CA (occurrence: CA)
  Receive Date: 20251105
  Receipt Date: 20251105
  Transmission Date: 20260117
  Serious: Yes (Other)
  Sender: AUROBINDO
  Company Number: CA-AUROBINDO-AUR-APL-2025-055567

PATIENT
  Age: 18 Year

DRUGS (2)
  1. AZITHROMYCIN [Suspect]
     Active Substance: AZITHROMYCIN
     Indication: Gonorrhoea
     Dosage: 1 GRAM
     Route: 030
  2. CEFIXIME [Suspect]
     Active Substance: CEFIXIME
     Indication: Gonorrhoea
     Dosage: UNK
     Route: 030

REACTIONS (2)
  - Oropharyngeal gonococcal infection [Recovered/Resolved]
  - Treatment failure [Recovered/Resolved]
